FAERS Safety Report 4764846-2 (Version None)
Quarter: 2005Q3

REPORT INFORMATION
  Report Type: 
  Country: None (occurrence: None)
  Receive Date: 20050909
  Receipt Date: 20050818
  Transmission Date: 20060218
  Serious: Yes (Other)
  Sender: FDA-Public Use
  Company Number: PHBS2005JP12098

PATIENT
  Age: 76 Year
  Sex: Female

DRUGS (2)
  1. MAPROTILINE HYDROCHLORIDE [Suspect]
     Indication: DEPRESSION
     Route: 065
  2. MAPROTILINE HYDROCHLORIDE [Suspect]
     Dosage: 75 MG/D
     Route: 065

REACTIONS (8)
  - AKINESIA [None]
  - APHASIA [None]
  - CATATONIA [None]
  - CEREBRAL ATROPHY [None]
  - CEREBRAL INFARCTION [None]
  - REGRESSIVE BEHAVIOUR [None]
  - STARING [None]
  - THERAPEUTIC PRODUCT INEFFECTIVE [None]
